FAERS Safety Report 5512200-8 (Version None)
Quarter: 2007Q4

REPORT INFORMATION
  Report Type: 
  Country: None (occurrence: None)
  Receive Date: 20071108
  Receipt Date: 20071108
  Transmission Date: 20080405
  Serious: Yes (Death)
  Sender: FDA-Public Use
  Company Number: None

PATIENT
  Sex: Female
  Weight: 72 kg

DRUGS (1)
  1. ARIXTRA [Suspect]
     Dosage: 7.5MG DAILY SQ
     Route: 058

REACTIONS (1)
  - INTRAVENTRICULAR HAEMORRHAGE [None]
